FAERS Safety Report 20664088 (Version 1)
Quarter: 2022Q2

REPORT INFORMATION
  Report Type: Spontaneous
  Country: RO (occurrence: None)
  Receive Date: 20220401
  Receipt Date: 20220401
  Transmission Date: 20220721
  Serious: Yes (Hospitalization)
  Sender: FDA-Public Use
  Company Number: 2022A127750

PATIENT
  Age: 19755 Day
  Sex: Male

DRUGS (7)
  1. TICAGRELOR [Suspect]
     Active Substance: TICAGRELOR
     Indication: Acute coronary syndrome
     Route: 048
     Dates: start: 20210118
  2. BISOPROLOL [Concomitant]
     Active Substance: BISOPROLOL
  3. ATORVASTATIN [Concomitant]
     Active Substance: ATORVASTATIN
  4. RAMIPRIL [Concomitant]
     Active Substance: RAMIPRIL
  5. SPIRONOLACTONE [Concomitant]
     Active Substance: SPIRONOLACTONE
  6. FUROSEMIDE [Concomitant]
     Active Substance: FUROSEMIDE
  7. ASPIRIN [Concomitant]
     Active Substance: ASPIRIN

REACTIONS (9)
  - Cardiac failure chronic [Recovering/Resolving]
  - Congestive cardiomyopathy [Recovering/Resolving]
  - Oedema peripheral [Unknown]
  - Fatigue [Unknown]
  - Blood urea increased [Unknown]
  - Blood creatinine normal [Unknown]
  - Glomerular filtration rate decreased [Unknown]
  - Chronic kidney disease [Unknown]
  - Dyspnoea exertional [Unknown]

NARRATIVE: CASE EVENT DATE: 20210618
